FAERS Safety Report 8863394 (Version 1)
Quarter: 2012Q4

REPORT INFORMATION
  Report Type: 
  Country: SE (occurrence: SE)
  Receive Date: 20121024
  Receipt Date: 20121024
  Transmission Date: 20130627
  Serious: Yes (Other)
  Sender: FDA-Public Use
  Company Number: SE-WATSON-2012-17764

PATIENT
  Age: 71 Year
  Sex: Female

DRUGS (1)
  1. METFORMIN HYDROCHLORIDE [Suspect]
     Indication: PRODUCT USED FOR UNKNOWN INDICATION
     Dosage: UNK
     Route: 065

REACTIONS (3)
  - Lactic acidosis [Unknown]
  - Hypoglycaemia [Unknown]
  - Cardiac arrest [Unknown]
